FAERS Safety Report 15543019 (Version 4)
Quarter: 2019Q1

REPORT INFORMATION
  Report Type: Spontaneous
  Country: JP (occurrence: JP)
  Receive Date: 20181023
  Receipt Date: 20190117
  Transmission Date: 20190417
  Serious: Yes (Other)
  Sender: FDA-Public Use
  Company Number: JP-PFIZER INC-2018433821

PATIENT
  Age: 61 Year
  Sex: Female

DRUGS (1)
  1. XALATAN [Suspect]
     Active Substance: LATANOPROST
     Indication: NORMAL TENSION GLAUCOMA
     Dosage: 1 GTT, DAILY
     Route: 047
     Dates: start: 20151109

REACTIONS (1)
  - Chronic hepatitis [Recovering/Resolving]

NARRATIVE: CASE EVENT DATE: 20181017
